FAERS Safety Report 14197577 (Version 1)
Quarter: 2017Q4

REPORT INFORMATION
  Report Type: Spontaneous
  Country: US (occurrence: US)
  Receive Date: 20171116
  Receipt Date: 20171116
  Transmission Date: 20180321
  Serious: No
  Sender: FDA-Public Use
  Company Number: US-009507513-1710USA014455

PATIENT
  Sex: Female

DRUGS (1)
  1. NEXPLANON [Suspect]
     Active Substance: ETONOGESTREL
     Indication: CONTRACEPTION
     Dosage: IMPLANT ON ARM
     Route: 059
     Dates: end: 201709

REACTIONS (5)
  - Dysstasia [Unknown]
  - Pain [Unknown]
  - Bladder dilatation [Unknown]
  - Discomfort [Unknown]
  - Uterine pain [Unknown]

NARRATIVE: CASE EVENT DATE: 2017
